FAERS Safety Report 17830390 (Version 3)
Quarter: 2020Q2

REPORT INFORMATION
  Report Type: Spontaneous
  Country: IT (occurrence: IT)
  Receive Date: 20200527
  Receipt Date: 20200624
  Transmission Date: 20200714
  Serious: Yes (Life-Threatening, Hospitalization, Other)
  Sender: FDA-Public Use
  Company Number: NVSC2020IT144565

PATIENT
  Sex: Female

DRUGS (8)
  1. CYTOSINE ARABINOSIDE [Concomitant]
     Active Substance: CYTARABINE
     Indication: AUTOLOGOUS HAEMATOPOIETIC STEM CELL TRANSPLANT
     Dosage: 200 MILLIGRAM/SQ. METER
     Route: 065
  2. BICNU [Concomitant]
     Active Substance: CARMUSTINE
     Indication: AUTOLOGOUS HAEMATOPOIETIC STEM CELL TRANSPLANT
     Dosage: 300 MILLIGRAM/SQ. METER (AT DAY -6)
     Route: 065
  3. CYCLOPHOSPHAMIDE. [Concomitant]
     Active Substance: CYCLOPHOSPHAMIDE
     Indication: HAEMATOPOIETIC STEM CELL MOBILISATION
     Dosage: 4 GRAM PER SQUARE METRE
     Route: 065
  4. ACYCLOVIR. [Concomitant]
     Active Substance: ACYCLOVIR
     Indication: PRODUCT USED FOR UNKNOWN INDICATION
     Dosage: UNK
     Route: 065
  5. ETOPOSIDE. [Concomitant]
     Active Substance: ETOPOSIDE
     Indication: AUTOLOGOUS HAEMATOPOIETIC STEM CELL TRANSPLANT
     Dosage: 200 MILLIGRAM/SQ. METER (FROM DAY -5 TO -2)
     Route: 065
  6. FILGRASTIM [Suspect]
     Active Substance: FILGRASTIM
     Indication: HAEMATOPOIETIC STEM CELL MOBILISATION
     Dosage: 5 ?G/KG, QD (BODY WEIGHT)
     Route: 058
  7. MELPHALAN. [Concomitant]
     Active Substance: MELPHALAN
     Indication: AUTOLOGOUS HAEMATOPOIETIC STEM CELL TRANSPLANT
     Dosage: 140 MILLIGRAM/SQ. METER (AT DAY -1)
     Route: 065
  8. SULFAMETHOXAZOLE [Concomitant]
     Active Substance: SULFAMETHOXAZOLE
     Indication: PRODUCT USED FOR UNKNOWN INDICATION
     Dosage: UNK
     Route: 065

REACTIONS (14)
  - Delayed engraftment [Recovered/Resolved]
  - Engraft failure [Recovered/Resolved]
  - Cytomegalovirus infection reactivation [Recovered/Resolved]
  - Febrile neutropenia [Unknown]
  - Leukopenia [Unknown]
  - Platelet count decreased [Unknown]
  - Systemic candida [Recovered/Resolved]
  - Mucosal inflammation [Unknown]
  - Herpes zoster [Unknown]
  - Amenorrhoea [Unknown]
  - Sepsis [Recovered/Resolved]
  - Diarrhoea [Unknown]
  - Anaemia [Unknown]
  - Cystitis [Unknown]
